FAERS Safety Report 19073899 (Version 1)
Quarter: 2021Q1

REPORT INFORMATION
  Report Type: Spontaneous
  Country: CZ (occurrence: CZ)
  Receive Date: 20210330
  Receipt Date: 20210330
  Transmission Date: 20210420
  Serious: Yes (Death, Hospitalization)
  Sender: FDA-Public Use
  Company Number: CZ-ELI_LILLY_AND_COMPANY-CZ202103012454

PATIENT
  Age: 59 Year
  Sex: Male

DRUGS (1)
  1. TALTZ [Suspect]
     Active Substance: IXEKIZUMAB
     Indication: PRODUCT USED FOR UNKNOWN INDICATION
     Dosage: 80 MG, EVERY 4 WEEKS
     Route: 058
     Dates: start: 20181029, end: 20201221

REACTIONS (3)
  - COVID-19 pneumonia [Unknown]
  - Respiratory failure [Fatal]
  - Hypercholesterolaemia [Unknown]

NARRATIVE: CASE EVENT DATE: 20201225
